FAERS Safety Report 4416490-4 (Version None)
Quarter: 2004Q2

REPORT INFORMATION
  Report Type: 
  Country: None (occurrence: None)
  Receive Date: 20040628
  Receipt Date: 20030902
  Transmission Date: 20050107
  Serious: Yes (Hospitalization)
  Sender: FDA-Public Use
  Company Number: 346174

PATIENT
  Sex: Female

DRUGS (2)
  1. CELLCEPT [Suspect]
     Dosage: ORAL
     Route: 048
  2. PREDNISONE TAB [Concomitant]

REACTIONS (6)
  - EAR PAIN [None]
  - EYE SWELLING [None]
  - HYPERSENSITIVITY [None]
  - PHARYNGOLARYNGEAL PAIN [None]
  - RASH [None]
  - SWELLING FACE [None]
